FAERS Safety Report 8380400-8 (Version None)
Quarter: 2012Q2

REPORT INFORMATION
  Report Type: 
  Country: None (occurrence: None)
  Receive Date: 20120523
  Receipt Date: 20120517
  Transmission Date: 20120825
  Serious: Yes (Hospitalization)
  Sender: FDA-Public Use
  Company Number: US-GLAXOSMITHKLINE-A0888742A

PATIENT
  Age: 51 Year
  Sex: Female

DRUGS (6)
  1. CLONIDINE [Concomitant]
  2. AVALIDE [Concomitant]
  3. CRESTOR [Concomitant]
  4. AVANDIA [Suspect]
     Indication: DIABETES MELLITUS
     Dosage: 4MG PER DAY
     Route: 048
     Dates: start: 20021201, end: 20060101
  5. GLUCOVANCE [Concomitant]
  6. TOPROL-XL [Concomitant]

REACTIONS (3)
  - TRANSIENT ISCHAEMIC ATTACK [None]
  - CEREBROVASCULAR ACCIDENT [None]
  - CEREBRAL INFARCTION [None]
